FAERS Safety Report 4959272-7 (Version None)
Quarter: 2006Q1

REPORT INFORMATION
  Report Type: 
  Country: None (occurrence: None)
  Receive Date: 20060130
  Receipt Date: 20050727
  Transmission Date: 20060701
  Serious: Yes (Hospitalization)
  Sender: FDA-Public Use
  Company Number: 142790USA

PATIENT
  Age: 52 Year
  Sex: Female

DRUGS (2)
  1. COPAXONE [Suspect]
     Indication: MULTIPLE SCLEROSIS
     Dates: start: 20040101, end: 20050101
  2. PROVIGIL [Concomitant]

REACTIONS (3)
  - FLANK PAIN [None]
  - HEPATOSPLENOMEGALY [None]
  - PANCYTOPENIA [None]
